FAERS Safety Report 11916518 (Version 1)
Quarter: 2016Q1

REPORT INFORMATION
  Report Type: Spontaneous
  Country: DE (occurrence: DE)
  Receive Date: 20160114
  Receipt Date: 20160114
  Transmission Date: 20160526
  Serious: Yes (Other)
  Sender: FDA-Public Use
  Company Number: GXKR2016DE000459

PATIENT

DRUGS (1)
  1. CLINDAHEXAL [Suspect]
     Active Substance: CLINDAMYCIN HYDROCHLORIDE
     Indication: ABSCESS JAW
     Dosage: DAILY DOSE: 1200 MG MILLIGRAM(S) EVERY DAY
     Route: 048
     Dates: start: 20151210

REACTIONS (5)
  - Diarrhoea [Recovered/Resolved]
  - Swollen tongue [Unknown]
  - Tongue discolouration [Unknown]
  - Sensation of foreign body [Unknown]
  - Dysphagia [Unknown]

NARRATIVE: CASE EVENT DATE: 20151210
